FAERS Safety Report 10661912 (Version 6)
Quarter: 2015Q3

REPORT INFORMATION
  Report Type: Spontaneous
  Country: US (occurrence: US)
  Receive Date: 20141218
  Receipt Date: 20150701
  Transmission Date: 20151125
  Serious: Yes (Hospitalization, Other)
  Sender: FDA-Public Use
  Company Number: US-ELI_LILLY_AND_COMPANY-US201412005142

PATIENT
  Age: 19 Year
  Sex: Female
  Weight: 77 kg

DRUGS (6)
  1. PROVENTIL                          /00139502/ [Concomitant]
     Dosage: UNK, PRN
     Route: 065
  2. PROZAC [Suspect]
     Active Substance: FLUOXETINE HYDROCHLORIDE
     Dosage: 20 MG, EACH MORNING
     Route: 065
     Dates: start: 20030820
  3. VISTARIL [Concomitant]
     Active Substance: HYDROXYZINE PAMOATE
     Dosage: 100 MG, UNKNOWN
     Route: 048
  4. TYLENOL [Concomitant]
     Active Substance: ACETAMINOPHEN
     Indication: PAIN
     Dosage: 325 MG, PRN
     Route: 048
  5. PROZAC [Suspect]
     Active Substance: FLUOXETINE HYDROCHLORIDE
     Indication: DEPRESSION
     Dosage: 10 MG, EACH MORNING
     Route: 065
     Dates: start: 20030813, end: 20030819
  6. PROZAC [Suspect]
     Active Substance: FLUOXETINE HYDROCHLORIDE
     Dosage: 30 MG, UNKNOWN
     Route: 065

REACTIONS (9)
  - Premature delivery [Recovered/Resolved]
  - Headache [Unknown]
  - Vomiting in pregnancy [Unknown]
  - Weight increased [Unknown]
  - Vaginal haemorrhage [Unknown]
  - Placenta praevia [Unknown]
  - Chest pain [Unknown]
  - Urinary tract infection [Unknown]
  - Exposure during pregnancy [Recovered/Resolved]

NARRATIVE: CASE EVENT DATE: 20040212
